FAERS Safety Report 17075700 (Version 3)
Quarter: 2020Q1

REPORT INFORMATION
  Report Type: Spontaneous
  Country: US (occurrence: US)
  Receive Date: 20191126
  Receipt Date: 20200108
  Transmission Date: 20200409
  Serious: No
  Sender: FDA-Public Use
  Company Number: US-PFIZER INC-2019507208

PATIENT
  Age: 69 Year
  Sex: Female
  Weight: 41.72 kg

DRUGS (5)
  1. CHANTIX [Suspect]
     Active Substance: VARENICLINE TARTRATE
     Indication: SMOKING CESSATION THERAPY
     Dosage: 0.5 DF, 1X/DAY [FOR 3 DAYS]
     Dates: start: 20191117, end: 20191119
  2. EZETIMIBE. [Concomitant]
     Active Substance: EZETIMIBE
     Indication: BLOOD CHOLESTEROL INCREASED
     Dosage: 10 MG, 1X/DAY
  3. CHANTIX [Suspect]
     Active Substance: VARENICLINE TARTRATE
     Dosage: 0.5 MG, UNK [1/2 MG DAY 1 TO 3; 1/2 MG 2 X DAY, DAY 4 TO 7 THEN I QUIT ON 6TH DAY]
     Dates: start: 20191117, end: 20191122
  4. CHANTIX [Suspect]
     Active Substance: VARENICLINE TARTRATE
     Dosage: 0.5 DF, 2X/DAY
     Dates: start: 20191120, end: 2019
  5. LEVOTHYROXINE. [Concomitant]
     Active Substance: LEVOTHYROXINE
     Indication: THYROID DISORDER
     Dosage: 0.75 MG, 1X/DAY

REACTIONS (6)
  - Off label use [Unknown]
  - Influenza [Unknown]
  - Flatulence [Unknown]
  - Diarrhoea [Recovered/Resolved]
  - Abdominal pain upper [Recovered/Resolved]
  - Wrong technique in product usage process [Unknown]

NARRATIVE: CASE EVENT DATE: 20191120
